FAERS Safety Report 13078491 (Version 1)
Quarter: 2017Q1

REPORT INFORMATION
  Report Type: Spontaneous
  Country: IL (occurrence: IL)
  Receive Date: 20170102
  Receipt Date: 20170102
  Transmission Date: 20170428
  Serious: Yes (Death)
  Sender: FDA-Public Use
  Company Number: IL-CLINIGEN GROUP PLC/ CLINIGEN HEALTHCARE LTD-E2B_00005600

PATIENT
  Age: 30 Year
  Sex: Female

DRUGS (7)
  1. GANCICLOVIR. [Suspect]
     Active Substance: GANCICLOVIR
     Indication: CYTOMEGALOVIRUS INFECTION
  2. ANTI-CMV IMMUNOGLOBINS NOS [Suspect]
     Active Substance: HUMAN CYTOMEGALOVIRUS IMMUNE GLOBULIN
     Indication: CYTOMEGALOVIRUS INFECTION
  3. ATG [Concomitant]
     Active Substance: LAPINE T-LYMPHOCYTE IMMUNE GLOBULIN
     Indication: CYTOMEGALOVIRUS INFECTION
  4. FOSCARNET?SODIUM [Suspect]
     Active Substance: FOSCARNET SODIUM
     Indication: CYTOMEGALOVIRUS INFECTION
  5. FLUDARABINE [Concomitant]
     Active Substance: FLUDARABINE PHOSPHATE
     Indication: CYTOMEGALOVIRUS INFECTION
  6. STEROIDS NOS [Concomitant]
     Active Substance: UNSPECIFIED INGREDIENT
     Indication: GRAFT VERSUS HOST DISEASE
  7. THIOTEPA. [Concomitant]
     Active Substance: THIOTEPA
     Indication: CYTOMEGALOVIRUS INFECTION

REACTIONS (2)
  - Cytomegalovirus infection [Fatal]
  - Disseminated cytomegaloviral infection [None]
